FAERS Safety Report 5338689-5 (Version None)
Quarter: 2007Q2

REPORT INFORMATION
  Report Type: 
  Country: None (occurrence: None)
  Receive Date: 20070530
  Receipt Date: 20070529
  Transmission Date: 20071010
  Serious: Yes (Hospitalization)
  Sender: FDA-Public Use
  Company Number: A0652950A

PATIENT
  Age: 68 Year
  Sex: Male
  Weight: 82.3 kg

DRUGS (3)
  1. LAPATINIB [Suspect]
     Dosage: 1500MG PER DAY
     Route: 048
     Dates: start: 20070424, end: 20070510
  2. GEMZAR [Suspect]
     Dosage: 1.9G CYCLIC
     Route: 042
     Dates: start: 20070424, end: 20070508
  3. XELODA [Concomitant]

REACTIONS (12)
  - ABDOMINAL PAIN [None]
  - ACUTE RESPIRATORY DISTRESS SYNDROME [None]
  - CHILLS [None]
  - CHOLANGITIS [None]
  - COUGH [None]
  - DIZZINESS [None]
  - DYSPNOEA [None]
  - FATIGUE [None]
  - GAIT DISTURBANCE [None]
  - PNEUMOCYSTIS JIROVECI INFECTION [None]
  - SEPSIS [None]
  - STENT OCCLUSION [None]
